FAERS Safety Report 25754678 (Version 1)
Quarter: 2025Q3

REPORT INFORMATION
  Report Type: Spontaneous
  Country: EU (occurrence: EU)
  Receive Date: 20250903
  Receipt Date: 20250903
  Transmission Date: 20251020
  Serious: Yes (Other)
  Sender: JOHNSON AND JOHNSON
  Company Number: EU-JNJFOC-20250625486

PATIENT
  Age: 52 Year
  Sex: Male
  Weight: 93 kg

DRUGS (3)
  1. YONDELIS [Suspect]
     Active Substance: TRABECTEDIN
     Indication: Myxoid liposarcoma
     Dosage: THERAPY END DATE: 04-MAR-2025
     Dates: start: 20240303
  2. YONDELIS [Suspect]
     Active Substance: TRABECTEDIN
     Dates: start: 20250402, end: 20250403
  3. YONDELIS [Suspect]
     Active Substance: TRABECTEDIN
     Dates: start: 20210429, end: 20230309

REACTIONS (8)
  - Catheter site erythema [Recovered/Resolved]
  - Catheter site swelling [Recovered/Resolved]
  - Extravasation [Recovered/Resolved]
  - Catheter site pain [Recovered/Resolved]
  - Catheter site inflammation [Not Recovered/Not Resolved]
  - Catheter site swelling [Not Recovered/Not Resolved]
  - Catheter site erythema [Not Recovered/Not Resolved]
  - Catheter site pain [Not Recovered/Not Resolved]

NARRATIVE: CASE EVENT DATE: 20250307
